FAERS Safety Report 9736491 (Version 1)
Quarter: 2013Q4

REPORT INFORMATION
  Report Type: Report from Study
  Country: US (occurrence: US)
  Receive Date: 20131206
  Receipt Date: 20131206
  Transmission Date: 20140711
  Serious: No
  Sender: FDA-Public Use
  Company Number: US-ASTRAZENECA-2013SE87022

PATIENT
  Sex: Male

DRUGS (2)
  1. ZOMIG ZMT [Suspect]
     Dosage: GENERIC
     Route: 048
  2. ZOMIG ZMT [Suspect]
     Route: 048

REACTIONS (1)
  - Fatigue [Unknown]
